FAERS Safety Report 5224548-5 (Version None)
Quarter: 2007Q1

REPORT INFORMATION
  Report Type: 
  Country: None (occurrence: None)
  Receive Date: 20070126
  Receipt Date: 20070112
  Transmission Date: 20070707
  Serious: Yes (Hospitalization)
  Sender: FDA-Public Use
  Company Number: FACT0700008

PATIENT
  Age: 43 Year
  Sex: Female
  Weight: 90.7 kg

DRUGS (1)
  1. FACTIVE [Suspect]
     Indication: RESPIRATORY TRACT INFECTION BACTERIAL
     Dosage: 320 MG, QD, ORAL
     Route: 048
     Dates: start: 20061219, end: 20061223

REACTIONS (7)
  - BLISTER [None]
  - BURNING SENSATION [None]
  - LETHARGY [None]
  - NAUSEA [None]
  - RASH GENERALISED [None]
  - SCAB [None]
  - SKIN EXFOLIATION [None]
